FAERS Safety Report 13954482 (Version 1)
Quarter: 2017Q3

REPORT INFORMATION
  Report Type: Spontaneous
  Country: SA (occurrence: SA)
  Receive Date: 20170910
  Receipt Date: 20170910
  Transmission Date: 20171128
  Serious: No
  Sender: FDA-Public Use
  Company Number: None

PATIENT
  Age: 28 Year
  Sex: Female
  Weight: 47 kg

DRUGS (1)
  1. RABEZOLE (RABEPRAZOLE SODIUM, 20MG) [Suspect]
     Active Substance: RABEPRAZOLE SODIUM
     Indication: DYSPEPSIA
     Dosage: ?          QUANTITY:1 TABLET(S);?
     Route: 048
     Dates: start: 20170907, end: 20170910

REACTIONS (2)
  - Menstruation irregular [None]
  - Vaginal haemorrhage [None]

NARRATIVE: CASE EVENT DATE: 20170908
